FAERS Safety Report 5432273-0 (Version None)
Quarter: 2007Q3

REPORT INFORMATION
  Report Type: 
  Country: None (occurrence: None)
  Receive Date: 20070830
  Receipt Date: 20070821
  Transmission Date: 20080115
  Serious: Yes (Hospitalization)
  Sender: FDA-Public Use
  Company Number: FR-PFIZER INC-2007070868

PATIENT
  Sex: Male

DRUGS (2)
  1. CHAMPIX [Suspect]
  2. ATORVASTATIN CALCIUM [Concomitant]

REACTIONS (1)
  - HEART RATE DECREASED [None]
